FAERS Safety Report 4730146-X (Version None)
Quarter: 2005Q3

REPORT INFORMATION
  Report Type: 
  Country: None (occurrence: None)
  Receive Date: 20050728
  Receipt Date: 20050728
  Transmission Date: 20060218
  Serious: No
  Sender: FDA-Public Use
  Company Number: None

PATIENT
  Age: 79 Year
  Sex: Male

DRUGS (2)
  1. FERRLECIT [Suspect]
     Indication: DIALYSIS
     Dosage: IV      (DURATION: ONCE)
     Route: 042
  2. FERRLECIT [Suspect]
     Indication: MINERAL SUPPLEMENTATION
     Dosage: IV      (DURATION: ONCE)
     Route: 042

REACTIONS (3)
  - HYPOTENSION [None]
  - NAUSEA [None]
  - VOMITING [None]
